FAERS Safety Report 18462867 (Version 1)
Quarter: 2020Q4

REPORT INFORMATION
  Report Type: Spontaneous
  Country: US (occurrence: US)
  Receive Date: 20201104
  Receipt Date: 20201104
  Transmission Date: 20210114
  Serious: Yes (Other)
  Sender: FDA-Public Use
  Company Number: US-FARMAPROD-202010-1424

PATIENT
  Sex: Male

DRUGS (6)
  1. LUMIGAN [Concomitant]
     Active Substance: BIMATOPROST
  2. TIMOPTIC [Concomitant]
     Active Substance: TIMOLOL MALEATE
  3. RESTASIS [Concomitant]
     Active Substance: CYCLOSPORINE
     Dosage: DROPERETTE
  4. RHOPRESSA [Concomitant]
     Active Substance: NETARSUDIL MESYLATE
  5. OXERVATE [Suspect]
     Active Substance: CENEGERMIN-BKBJ
     Indication: NEUROTROPHIC KERATOPATHY
     Route: 047
     Dates: start: 20201015
  6. COMBIGAN [Concomitant]
     Active Substance: BRIMONIDINE TARTRATE\TIMOLOL MALEATE
     Dosage: 0.2%-0.5%

REACTIONS (1)
  - Limb operation [Unknown]
